FAERS Safety Report 12379858 (Version 1)
Quarter: 2016Q2

REPORT INFORMATION
  Report Type: Report from Study
  Country: ZA (occurrence: ZA)
  Receive Date: 20160518
  Receipt Date: 20160518
  Transmission Date: 20160815
  Serious: Yes (Death, Other)
  Sender: FDA-Public Use
  Company Number: ZA-AMGEN-ZAFSL2016061669

PATIENT
  Age: 62 Year
  Sex: Female

DRUGS (1)
  1. ARANESP [Suspect]
     Active Substance: DARBEPOETIN ALFA
     Indication: PRODUCT USED FOR UNKNOWN INDICATION
     Dosage: 150 UNK, QMO
     Route: 058
     Dates: start: 201301, end: 201512

REACTIONS (3)
  - Bedridden [Unknown]
  - Death [Fatal]
  - Disease progression [Unknown]

NARRATIVE: CASE EVENT DATE: 201512
